FAERS Safety Report 18249038 (Version 1)
Quarter: 2020Q3

REPORT INFORMATION
  Report Type: Spontaneous
  Country: US (occurrence: US)
  Receive Date: 20200909
  Receipt Date: 20200909
  Transmission Date: 20201103
  Serious: No
  Sender: FDA-Public Use
  Company Number: US-PERRIGO-20US011580

PATIENT
  Age: 66 Year
  Sex: Male
  Weight: 78.01 kg

DRUGS (6)
  1. ALBUTEROL SULFATE. [Suspect]
     Active Substance: ALBUTEROL SULFATE
     Indication: ASTHMA EXERCISE INDUCED
     Dosage: 180 MCG OR UNKNOWN, PRN
     Route: 055
     Dates: start: 20200514
  2. GUANFACINE. [Concomitant]
     Active Substance: GUANFACINE
     Indication: ATTENTION DEFICIT HYPERACTIVITY DISORDER
     Dosage: UNK
     Route: 065
     Dates: start: 202006
  3. PANTOPRAZOLE [Concomitant]
     Active Substance: PANTOPRAZOLE
     Indication: GASTROOESOPHAGEAL REFLUX DISEASE
     Dosage: UNK
     Route: 065
  4. DEXTROAMPHETAMINE                  /00016601/ [Concomitant]
     Active Substance: DEXTROAMPHETAMINE
     Indication: ATTENTION DEFICIT HYPERACTIVITY DISORDER
     Dosage: UNK
     Route: 065
     Dates: start: 202006
  5. MYRBETRIQ [Concomitant]
     Active Substance: MIRABEGRON
     Indication: CYSTITIS INTERSTITIAL
     Dosage: UNK
     Route: 065
     Dates: start: 2019, end: 202007
  6. ROSUVASTATIN. [Concomitant]
     Active Substance: ROSUVASTATIN
     Indication: ARTERIOSCLEROSIS
     Dosage: UNK
     Route: 065
     Dates: start: 2019

REACTIONS (4)
  - Drug ineffective [Unknown]
  - Device delivery system issue [Unknown]
  - Incorrect dose administered [Unknown]
  - Inappropriate schedule of product administration [Unknown]

NARRATIVE: CASE EVENT DATE: 20200514
